FAERS Safety Report 12464472 (Version 1)
Quarter: 2016Q2

REPORT INFORMATION
  Report Type: Spontaneous
  Country: FR (occurrence: FR)
  Receive Date: 20160614
  Receipt Date: 20160614
  Transmission Date: 20160815
  Serious: Yes (Other)
  Sender: FDA-Public Use
  Company Number: FR-SA-2016SA086266

PATIENT
  Age: 39 Year
  Sex: Female
  Weight: 59 kg

DRUGS (1)
  1. AUBAGIO [Suspect]
     Active Substance: TERIFLUNOMIDE
     Indication: MULTIPLE SCLEROSIS
     Route: 048
     Dates: start: 20150511, end: 20151118

REACTIONS (2)
  - Fixed drug eruption [Recovered/Resolved]
  - Pruritus [Recovered/Resolved]

NARRATIVE: CASE EVENT DATE: 20151101
